FAERS Safety Report 7299471-5 (Version None)
Quarter: 2011Q1

REPORT INFORMATION
  Report Type: 
  Country: None (occurrence: None)
  Receive Date: 20110217
  Receipt Date: 20110217
  Transmission Date: 20110831
  Serious: Yes (Other)
  Sender: FDA-Public Use
  Company Number: D0067114A

PATIENT
  Age: 55 Year
  Sex: Female

DRUGS (6)
  1. REQUIP [Suspect]
     Dosage: 20MG PER DAY
     Route: 048
  2. STALEVO 100 [Suspect]
     Dosage: 125MG FIVE TIMES PER DAY
     Route: 065
  3. NEUPRO [Suspect]
     Route: 062
  4. AZILECT [Suspect]
     Route: 065
  5. PIRIBEDIL [Suspect]
     Route: 065
     Dates: end: 20101001
  6. MADOPAR [Suspect]
     Route: 065

REACTIONS (11)
  - RESTLESSNESS [None]
  - LOGORRHOEA [None]
  - ALLODYNIA [None]
  - DIZZINESS [None]
  - IMMOBILE [None]
  - MOVEMENT DISORDER [None]
  - MUSCULOSKELETAL STIFFNESS [None]
  - NAUSEA [None]
  - ON AND OFF PHENOMENON [None]
  - PAIN IN EXTREMITY [None]
  - DRUG EFFECT DECREASED [None]
